FAERS Safety Report 24031333 (Version 2)
Quarter: 2024Q3

REPORT INFORMATION
  Report Type: Spontaneous
  Country: US (occurrence: US)
  Receive Date: 20240629
  Receipt Date: 20240709
  Transmission Date: 20241017
  Serious: Yes (Hospitalization, Other)
  Sender: AUROBINDO
  Company Number: US-MLMSERVICE-20240613-PI097447-00050-1

PATIENT
  Age: 65 Year
  Sex: Female

DRUGS (6)
  1. AMLODIPINE BESYLATE [Suspect]
     Active Substance: AMLODIPINE BESYLATE
     Indication: Product used for unknown indication
     Dosage: 15 DOSAGE FORM
     Route: 048
  2. LISINOPRIL [Suspect]
     Active Substance: LISINOPRIL
     Indication: Product used for unknown indication
     Dosage: UNK, UNSPECIFIED AMOUNT
     Route: 048
  3. VASOPRESSIN [Suspect]
     Active Substance: VASOPRESSIN
     Indication: Product used for unknown indication
     Dosage: UNK
     Route: 065
  4. EPINEPHRINE [Suspect]
     Active Substance: EPINEPHRINE
     Indication: Product used for unknown indication
     Dosage: UNK
     Route: 065
  5. VALPROATE SODIUM [Suspect]
     Active Substance: VALPROATE SODIUM
     Indication: Product used for unknown indication
     Dosage: UNK, UNSPECIFIED AMOUNT
     Route: 048
  6. METHYLENE BLUE [Suspect]
     Active Substance: METHYLENE BLUE
     Indication: Vasoplegia syndrome
     Dosage: 0.5 MILLIGRAM/KILOGRAM, FOUR TIMES/DAY
     Route: 040

REACTIONS (10)
  - Lactic acidosis [Unknown]
  - Vasoplegia syndrome [Recovering/Resolving]
  - Hyperglycaemia [Unknown]
  - Blood creatinine increased [Unknown]
  - Suicide attempt [Recovering/Resolving]
  - Intentional overdose [Unknown]
  - Leukocytosis [Unknown]
  - Somnolence [Unknown]
  - Hypotension [Unknown]
  - Drug ineffective [Unknown]
